FAERS Safety Report 8916752 (Version 1)
Quarter: 2012Q4

REPORT INFORMATION
  Report Type: 
  Country: GB (occurrence: GB)
  Receive Date: 20121120
  Receipt Date: 20121120
  Transmission Date: 20130627
  Serious: Yes (Hospitalization)
  Sender: FDA-Public Use
  Company Number: GB-JNJFOC-2004193498GB

PATIENT
  Age: 73 Year
  Sex: Male

DRUGS (3)
  1. IBUPROFEN [Suspect]
     Indication: PAIN
     Dosage: Daily Dose Text: 400 MG, 3 IN 1 DAY
     Route: 048
     Dates: end: 20031205
  2. TRAMADOL [Concomitant]
     Indication: PRODUCT USED FOR UNKNOWN INDICATION
     Dosage: Daily Dose Text: 50 MG, 3 IN 1 DAY
     Route: 048
  3. VENLAFAXINE [Concomitant]
     Indication: PRODUCT USED FOR UNKNOWN INDICATION
     Dosage: Daily Dose Text: 75 MG, 1 IN 1 DAY
     Route: 048

REACTIONS (3)
  - Haematemesis [Recovering/Resolving]
  - Hiatus hernia [Recovering/Resolving]
  - Duodenal ulcer [Recovering/Resolving]
